FAERS Safety Report 8775994 (Version 1)
Quarter: 2012Q4

REPORT INFORMATION
  Report Type: 
  Country: FR (occurrence: FR)
  Receive Date: 20120910
  Receipt Date: 20120910
  Transmission Date: 20130627
  Serious: Yes (Hospitalization)
  Sender: FDA-Public Use
  Company Number: FR-ASTRAZENECA-2012SE69555

PATIENT
  Age: 75 Year
  Sex: Female

DRUGS (6)
  1. INEXIUM [Suspect]
     Route: 048
     Dates: start: 20120627, end: 20120719
  2. BURINEX [Suspect]
     Route: 048
     Dates: start: 20120627, end: 20120719
  3. PREVISCAN [Concomitant]
     Dates: start: 201205
  4. TARDYFERON [Concomitant]
     Dates: start: 201206
  5. TRIATEC [Concomitant]
     Dates: start: 201205
  6. AMIODARONE [Concomitant]

REACTIONS (2)
  - Cutaneous vasculitis [Recovered/Resolved]
  - Vascular purpura [Recovered/Resolved]
